FAERS Safety Report 20683571 (Version 7)
Quarter: 2022Q3

REPORT INFORMATION
  Report Type: Report from Study
  Country: US (occurrence: US)
  Receive Date: 20220407
  Receipt Date: 20220716
  Transmission Date: 20221027
  Serious: Yes (Other)
  Sender: FDA-Public Use
  Company Number: US-NOVARTISTESTPH-NVSC2022US079425

PATIENT
  Sex: Female

DRUGS (3)
  1. ENTRESTO [Suspect]
     Active Substance: SACUBITRIL\VALSARTAN
     Indication: Product used for unknown indication
     Dosage: 50 MG, BID(24/26 MG)
     Route: 048
     Dates: start: 202112
  2. ENTRESTO [Suspect]
     Active Substance: SACUBITRIL\VALSARTAN
     Dosage: 0.5 DOSAGE FORM, BID (49/51 MG)
     Route: 048
  3. ENTRESTO [Suspect]
     Active Substance: SACUBITRIL\VALSARTAN
     Dosage: UNK
     Route: 048

REACTIONS (10)
  - Cardiac dysfunction [Unknown]
  - Cardiac sarcoidosis [Unknown]
  - Stress [Unknown]
  - Rhinorrhoea [Unknown]
  - Muscle fatigue [Unknown]
  - Cough [Unknown]
  - Fatigue [Unknown]
  - Pulse absent [Unknown]
  - Product supply issue [Unknown]
  - Wrong technique in product usage process [Unknown]
